FAERS Safety Report 19439439 (Version 1)
Quarter: 2021Q2

REPORT INFORMATION
  Report Type: Spontaneous
  Country: JP (occurrence: JP)
  Receive Date: 20210619
  Receipt Date: 20210619
  Transmission Date: 20210717
  Serious: Yes (Other)
  Sender: FDA-Public Use
  Company Number: JP-ACCORD-228334

PATIENT
  Age: 37 Month
  Sex: Female

DRUGS (5)
  1. DOCETAXEL. [Suspect]
     Active Substance: DOCETAXEL
     Indication: METASTATIC NEOPLASM
     Dosage: ON DAY 8 (2 COURSES)
  2. GEMCITABINE/GEMCITABINE HYDROCHLORIDE [Suspect]
     Active Substance: GEMCITABINE\GEMCITABINE HYDROCHLORIDE
     Indication: METASTATIC NEOPLASM
  3. DOCETAXEL. [Suspect]
     Active Substance: DOCETAXEL
     Indication: ATYPICAL TERATOID/RHABDOID TUMOUR OF CNS
     Dosage: ON DAY 8 (2 COURSES)
  4. METHOTREXATE. [Concomitant]
     Active Substance: METHOTREXATE
     Indication: ATYPICAL TERATOID/RHABDOID TUMOUR OF CNS
     Dosage: TOTAL COURSE RECEIVED 4 COURSES
     Route: 037
  5. METHOTREXATE. [Concomitant]
     Active Substance: METHOTREXATE
     Indication: METASTATIC NEOPLASM
     Dosage: TOTAL COURSE RECEIVED 4 COURSES
     Route: 037

REACTIONS (3)
  - Acute respiratory distress syndrome [Unknown]
  - Haematotoxicity [Unknown]
  - Pneumonia viral [Unknown]
